FAERS Safety Report 17338684 (Version 2)
Quarter: 2020Q1

REPORT INFORMATION
  Report Type: Report from Study
  Country: GB (occurrence: GB)
  Receive Date: 20200129
  Receipt Date: 20200331
  Transmission Date: 20200409
  Serious: Yes (Other)
  Sender: FDA-Public Use
  Company Number: PHHY2018GB192836

PATIENT
  Age: 50 Year
  Sex: Male

DRUGS (2)
  1. COSENTYX [Suspect]
     Active Substance: SECUKINUMAB
     Indication: PSORIATIC ARTHROPATHY
     Dosage: 300 MG, UNK
     Route: 065
     Dates: start: 20170718, end: 20180328
  2. COSENTYX [Suspect]
     Active Substance: SECUKINUMAB
     Dosage: 300 MG, UNK
     Route: 065
     Dates: start: 20180329

REACTIONS (6)
  - Hyperhidrosis [Not Recovered/Not Resolved]
  - Rash [Unknown]
  - Psoriatic arthropathy [Recovered/Resolved]
  - Night sweats [Recovered/Resolved]
  - Lower respiratory tract infection [Recovered/Resolved]
  - Xanthelasma [Unknown]

NARRATIVE: CASE EVENT DATE: 20180926
